FAERS Safety Report 24732759 (Version 4)
Quarter: 2025Q1

REPORT INFORMATION
  Report Type: Spontaneous
  Country: US (occurrence: US)
  Receive Date: 20241213
  Receipt Date: 20250220
  Transmission Date: 20250408
  Serious: No
  Sender: PFIZER
  Company Number: US-PFIZER INC-2020062604

PATIENT
  Age: 69 Year
  Sex: Female
  Weight: 47.63 kg

DRUGS (3)
  1. PREMARIN [Suspect]
     Active Substance: ESTROGENS, CONJUGATED
     Indication: Menopause
     Route: 048
  2. PREMARIN [Suspect]
     Active Substance: ESTROGENS, CONJUGATED
     Dosage: 1.25 MG, 2X/DAY
     Route: 048
  3. PREMARIN [Suspect]
     Active Substance: ESTROGENS, CONJUGATED
     Dosage: 1.25 MG, 2X/DAY (2 TABLETS DAILY 90 DAYS)
     Route: 048

REACTIONS (3)
  - Tremor [Unknown]
  - Off label use [Unknown]
  - Intentional product misuse [Unknown]
